FAERS Safety Report 7487812-5 (Version None)
Quarter: 2011Q2

REPORT INFORMATION
  Report Type: 
  Country: None (occurrence: None)
  Receive Date: 20110511
  Receipt Date: 20110428
  Transmission Date: 20111010
  Serious: Yes (Other)
  Sender: FDA-Public Use
  Company Number: 029325

PATIENT
  Sex: Female

DRUGS (2)
  1. XYZAL [Suspect]
     Indication: RHINITIS ALLERGIC
     Dosage: (5 MG QD ORAL), ()
     Route: 048
     Dates: start: 20110101
  2. XYZAL [Suspect]
     Indication: RHINITIS ALLERGIC
     Dosage: (5 MG QD ORAL), ()
     Route: 048
     Dates: start: 20110302, end: 20110309

REACTIONS (1)
  - METRORRHAGIA [None]
